FAERS Safety Report 24619199 (Version 1)
Quarter: 2024Q4

REPORT INFORMATION
  Report Type: Spontaneous
  Country: US (occurrence: US)
  Receive Date: 20241114
  Receipt Date: 20241114
  Transmission Date: 20250115
  Serious: Yes (Other)
  Sender: NOVARTIS
  Company Number: US-002147023-NVSC2024US216602

PATIENT
  Age: 44 Year
  Sex: Female

DRUGS (2)
  1. DABRAFENIB [Suspect]
     Active Substance: DABRAFENIB
     Indication: Non-small cell lung cancer
     Dosage: 2 MG, QD (OPENED DABRAFENIB CAPSULES, EACH DISSOLVED IN 10 ML OF WATER AND ADMINISTERED THROUGH THE
     Route: 065
  2. TRAMETINIB [Suspect]
     Active Substance: TRAMETINIB
     Indication: Non-small cell lung cancer
     Dosage: 150 MG, BID (CRUSHED TRAMETINIB TABLETS, EACH DISSOLVED IN 10 ML OF WATER AND ADMINISTERED THROUGH T
     Route: 065

REACTIONS (5)
  - Non-small cell lung cancer metastatic [Unknown]
  - Malignant neoplasm progression [Unknown]
  - Nausea [Recovering/Resolving]
  - Off label use [Unknown]
  - Wrong technique in product usage process [Unknown]
